FAERS Safety Report 25969896 (Version 1)
Quarter: 2025Q4

REPORT INFORMATION
  Report Type: Spontaneous
  Country: US (occurrence: None)
  Receive Date: 20251028
  Receipt Date: 20251028
  Transmission Date: 20260117
  Serious: No
  Sender: UCB
  Company Number: US-UCBSA-2025039865

PATIENT
  Age: 54 Year

DRUGS (2)
  1. BIMZELX [Suspect]
     Active Substance: BIMEKIZUMAB-BKZX
     Indication: Psoriatic arthropathy
     Dosage: 320 MILLIGRAM, EV 2 WEEKS(QOW)
  2. ENBREL [Concomitant]
     Active Substance: ETANERCEPT

REACTIONS (2)
  - Injection site reaction [Unknown]
  - Off label use [Unknown]
